FAERS Safety Report 25832011 (Version 1)
Quarter: 2025Q3

REPORT INFORMATION
  Report Type: Spontaneous
  Country: US (occurrence: US)
  Receive Date: 20250922
  Receipt Date: 20250922
  Transmission Date: 20251020
  Serious: No
  Sender: MSN LABORATORIES PRIVATE LIMITED
  Company Number: US-MSNLABS-2025MSNSPO02663

PATIENT

DRUGS (1)
  1. LISDEXAMFETAMINE DIMESYLATE [Suspect]
     Active Substance: LISDEXAMFETAMINE DIMESYLATE
     Indication: Product used for unknown indication
     Dosage: ONCE PER DAY
     Route: 048
     Dates: start: 20250604

REACTIONS (7)
  - Pain in jaw [Unknown]
  - Toothache [Unknown]
  - Emotional disorder [Unknown]
  - Product substitution issue [Unknown]
  - Mood altered [Unknown]
  - Irritability [Unknown]
  - Agitation [Unknown]
